FAERS Safety Report 13660115 (Version 1)
Quarter: 2017Q2

REPORT INFORMATION
  Report Type: Spontaneous
  Country: US (occurrence: US)
  Receive Date: 20170615
  Receipt Date: 20170615
  Transmission Date: 20170830
  Serious: Yes (Hospitalization)
  Sender: FDA-Public Use
  Company Number: None

PATIENT
  Age: 60 Year
  Sex: Female

DRUGS (1)
  1. LETAIRIS [Suspect]
     Active Substance: AMBRISENTAN
     Indication: PULMONARY ARTERIAL HYPERTENSION
     Route: 048
     Dates: start: 20140729

REACTIONS (4)
  - Coagulopathy [None]
  - Subdural haemorrhage [None]
  - Loss of consciousness [None]
  - Thrombocytopenia [None]

NARRATIVE: CASE EVENT DATE: 20170603
